FAERS Safety Report 8150993-4 (Version None)
Quarter: 2012Q1

REPORT INFORMATION
  Report Type: 
  Country: None (occurrence: None)
  Receive Date: 20120220
  Receipt Date: 20120207
  Transmission Date: 20120608
  Serious: Yes (Hospitalization)
  Sender: FDA-Public Use
  Company Number: US-ELI_LILLY_AND_COMPANY-US201105002927

PATIENT
  Sex: Female

DRUGS (1)
  1. FORTEO [Suspect]
     Dosage: 20 UG, QD
     Route: 058
     Dates: start: 20100505, end: 20110101

REACTIONS (4)
  - DERMATOMYOSITIS [None]
  - STAPHYLOCOCCAL INFECTION [None]
  - DYSPNOEA [None]
  - URTICARIA [None]
